FAERS Safety Report 11309021 (Version 1)
Quarter: 2015Q3

REPORT INFORMATION
  Report Type: Spontaneous
  Country: US (occurrence: US)
  Receive Date: 20150724
  Receipt Date: 20150724
  Transmission Date: 20151125
  Serious: Yes (Death, Hospitalization)
  Sender: FDA-Public Use
  Company Number: US-MYLANLABS-2014M1004160

PATIENT

DRUGS (2)
  1. CITALOPRAM [Suspect]
     Active Substance: CITALOPRAM HYDROBROMIDE
     Indication: PRODUCT USED FOR UNKNOWN INDICATION
     Route: 065
  2. CITALOPRAM [Suspect]
     Active Substance: CITALOPRAM HYDROBROMIDE
     Indication: OFF LABEL USE

REACTIONS (7)
  - Intentional overdose [Fatal]
  - Renal injury [Fatal]
  - Serotonin syndrome [Fatal]
  - Cardiac arrest [Fatal]
  - Liver injury [Fatal]
  - Torsade de pointes [Fatal]
  - Seizure [Fatal]
